FAERS Safety Report 6240050-6 (Version None)
Quarter: 2009Q2

REPORT INFORMATION
  Report Type: 
  Country: None (occurrence: None)
  Receive Date: 20090623
  Receipt Date: 20090618
  Transmission Date: 20091009
  Serious: Yes (Death)
  Sender: FDA-Public Use
  Company Number: PHHY2009BR23667

PATIENT
  Sex: Male

DRUGS (7)
  1. EXFORGE [Suspect]
     Indication: HYPERTENSION
     Dosage: 1 TABLET A DAY
     Route: 048
     Dates: start: 20080801
  2. STARFORM [Suspect]
     Indication: DIABETES MELLITUS
     Dosage: 2 TABLETS A DAY
     Route: 048
     Dates: start: 20050101
  3. ATENOLOL [Concomitant]
     Dosage: 50 MG, BID
  4. MODURETIC 5-50 [Concomitant]
     Dosage: 25 MG, UNK
  5. DIAMICRON [Concomitant]
     Dosage: 3 TABLETS A DAY
  6. CITALOPRAM [Concomitant]
     Dosage: 20 MG
  7. SOMALGIN [Concomitant]

REACTIONS (1)
  - DEATH [None]
